FAERS Safety Report 25278119 (Version 1)
Quarter: 2025Q2

REPORT INFORMATION
  Report Type: Spontaneous
  Country: US (occurrence: None)
  Receive Date: 20250506
  Receipt Date: 20250506
  Transmission Date: 20250716
  Serious: Yes (Hospitalization)
  Sender: FDA-CTU
  Company Number: None

PATIENT
  Age: 41 Year
  Sex: Female

DRUGS (8)
  1. LOKELMA [Suspect]
     Active Substance: SODIUM ZIRCONIUM CYCLOSILICATE
     Indication: Hyperkalaemia
  2. sevalamer acetate [Concomitant]
  3. METOPROLOL SUCCINATE [Concomitant]
     Active Substance: METOPROLOL SUCCINATE
  4. AMLODIPINE [Concomitant]
     Active Substance: AMLODIPINE BESYLATE
  5. furosemide 80mg [Concomitant]
  6. rena-vite rx tablets [Concomitant]
  7. vitamin d 1000 units [Concomitant]
  8. INSULIN ASPART [Concomitant]
     Active Substance: INSULIN ASPART

REACTIONS (5)
  - Vomiting [None]
  - Dehydration [None]
  - Seizure [None]
  - Electrolyte imbalance [None]
  - Blood potassium abnormal [None]

NARRATIVE: CASE EVENT DATE: 20250420
